FAERS Safety Report 5641273-7 (Version None)
Quarter: 2008Q1

REPORT INFORMATION
  Report Type: 
  Country: None (occurrence: None)
  Receive Date: 20080227
  Receipt Date: 20070423
  Transmission Date: 20080703
  Serious: No
  Sender: FDA-Public Use
  Company Number: A0648145A

PATIENT
  Age: 31 Year
  Sex: Female

DRUGS (1)
  1. NICORETTE [Suspect]
     Dates: start: 20070416, end: 20070416

REACTIONS (2)
  - NAUSEA [None]
  - VOMITING [None]
